FAERS Safety Report 24288539 (Version 4)
Quarter: 2025Q3

REPORT INFORMATION
  Report Type: Report from Study
  Country: IL (occurrence: IL)
  Receive Date: 20240906
  Receipt Date: 20250715
  Transmission Date: 20251021
  Serious: Yes (Death, Hospitalization, Other)
  Sender: TAKEDA
  Company Number: IL-TAKEDA-2022TUS097646

PATIENT
  Age: 98 Year
  Sex: Male

DRUGS (3)
  1. VELAGLUCERASE ALFA [Suspect]
     Active Substance: VELAGLUCERASE ALFA
     Indication: Gaucher^s disease
     Dosage: 6 DOSAGE FORM, MONTHLY
     Dates: start: 20120827
  2. VELAGLUCERASE ALFA [Suspect]
     Active Substance: VELAGLUCERASE ALFA
     Dosage: UNK UNK, Q2WEEKS
     Dates: start: 20120902
  3. VELAGLUCERASE ALFA [Suspect]
     Active Substance: VELAGLUCERASE ALFA

REACTIONS (4)
  - Pneumonia [Fatal]
  - Transient ischaemic attack [Not Recovered/Not Resolved]
  - Cerebrovascular accident [Not Recovered/Not Resolved]
  - COVID-19 [Not Recovered/Not Resolved]

NARRATIVE: CASE EVENT DATE: 20240902
